FAERS Safety Report 6949987-3 (Version None)
Quarter: 2010Q3

REPORT INFORMATION
  Report Type: 
  Country: None (occurrence: None)
  Receive Date: 20100828
  Receipt Date: 20100121
  Transmission Date: 20110219
  Serious: No
  Sender: FDA-Public Use
  Company Number: US-ABBOTT-10P-163-0622115-00

PATIENT
  Age: 66 Year
  Sex: Female
  Weight: 67.192 kg

DRUGS (7)
  1. NIASPAN [Suspect]
     Indication: BLOOD CHOLESTEROL INCREASED
     Dates: start: 20091228, end: 20100120
  2. NIASPAN [Suspect]
     Dates: start: 20100120
  3. ASPIRIN [Concomitant]
     Indication: PROPHYLAXIS
     Dates: start: 20091228
  4. VYTORIN [Concomitant]
     Indication: BLOOD CHOLESTEROL INCREASED
     Dosage: 10/40MG
  5. DETROL LA [Concomitant]
     Indication: INCONTINENCE
  6. LEXAPRO [Concomitant]
     Indication: ANXIETY
  7. ESTRODERM CLIMARIA [Concomitant]
     Indication: HORMONE REPLACEMENT THERAPY
     Route: 062

REACTIONS (2)
  - FLUSHING [None]
  - PRURITUS [None]
